FAERS Safety Report 9790529 (Version 1)
Quarter: 2013Q4

REPORT INFORMATION
  Report Type: Spontaneous
  Country: ES (occurrence: ES)
  Receive Date: 20131231
  Receipt Date: 20131231
  Transmission Date: 20140711
  Serious: Yes (Other)
  Sender: FDA-Public Use
  Company Number: ES-PFIZER INC-2013369947

PATIENT
  Age: 63 Year
  Sex: Female

DRUGS (2)
  1. TYGACIL [Suspect]
     Indication: PERITONITIS
     Dosage: 50 MG, 2X/DAY
     Route: 042
     Dates: start: 20131124, end: 20131129
  2. CEFEPIME [Suspect]
     Indication: PERITONITIS
     Dosage: 2 G, 3X/DAY
     Route: 042
     Dates: start: 20131124

REACTIONS (4)
  - Dermatitis exfoliative [Recovering/Resolving]
  - Toxic skin eruption [Recovering/Resolving]
  - Rash generalised [Recovering/Resolving]
  - Eosinophilia [Recovering/Resolving]
